FAERS Safety Report 5491515-6 (Version None)
Quarter: 2007Q4

REPORT INFORMATION
  Report Type: 
  Country: None (occurrence: None)
  Receive Date: 20071022
  Receipt Date: 20071015
  Transmission Date: 20080405
  Serious: Yes (Disabling)
  Sender: FDA-Public Use
  Company Number: PHRM2007FR02388

PATIENT
  Age: 56 Year
  Sex: Female

DRUGS (6)
  1. ZOMETA [Suspect]
     Indication: METASTASES TO BONE
     Dosage: 4 MG EVERY 28 DAYS
     Route: 042
     Dates: start: 20030409, end: 20060306
  2. FEMARA [Concomitant]
     Dates: start: 20030409
  3. IBUPROFEN [Concomitant]
     Dates: start: 20030409
  4. TERCIAN [Concomitant]
     Dates: start: 20030409
  5. SOLIAN [Concomitant]
     Dates: start: 20030409
  6. ZOPLICONE [Concomitant]
     Dates: start: 20030409

REACTIONS (2)
  - INFECTION [None]
  - OSTEONECROSIS [None]
